FAERS Safety Report 8815580 (Version 1)
Quarter: 2012Q4

REPORT INFORMATION
  Report Type: 
  Country: CO (occurrence: CO)
  Receive Date: 20120928
  Receipt Date: 20120928
  Transmission Date: 20130627
  Serious: Yes (Other)
  Sender: FDA-Public Use
  Company Number: CO-JNJFOC-20120806641

PATIENT
  Age: 32 Year
  Sex: Female

DRUGS (5)
  1. REMICADE [Suspect]
     Indication: RHEUMATOID ARTHRITIS
     Route: 042
     Dates: start: 20120312, end: 20120313
  2. REMICADE [Suspect]
     Indication: RHEUMATOID ARTHRITIS
     Route: 042
     Dates: start: 200911
  3. CHLOROQUINE [Concomitant]
     Route: 048
     Dates: start: 20070101
  4. OMEPRAZOLE [Concomitant]
     Route: 048
     Dates: start: 20120501
  5. METHOTREXATE [Concomitant]
     Route: 048
     Dates: start: 20100101, end: 20120313

REACTIONS (1)
  - Pulmonary tuberculosis [Recovering/Resolving]
